FAERS Safety Report 26084981 (Version 1)
Quarter: 2025Q4

REPORT INFORMATION
  Report Type: Spontaneous
  Country: US (occurrence: US)
  Receive Date: 20251125
  Receipt Date: 20251125
  Transmission Date: 20260119
  Serious: Yes (Death)
  Sender: ROCHE
  Company Number: US-ROCHE-10000442299

PATIENT
  Sex: Male

DRUGS (1)
  1. TECENTRIQ [Suspect]
     Active Substance: ATEZOLIZUMAB
     Indication: Product used for unknown indication
     Route: 042
     Dates: start: 20250417

REACTIONS (2)
  - Off label use [Unknown]
  - Death [Fatal]
